FAERS Safety Report 4384276-5 (Version None)
Quarter: 2004Q2

REPORT INFORMATION
  Report Type: 
  Country: None (occurrence: None)
  Receive Date: 20040618
  Receipt Date: 20040615
  Transmission Date: 20050107
  Serious: Yes (Other)
  Sender: FDA-Public Use
  Company Number: NLWYE830316JUN04

PATIENT
  Age: 45 Year
  Sex: Female

DRUGS (1)
  1. EFFEXOR XR [Suspect]
     Indication: DEPRESSION
     Dosage: 75 MG 1X PER 1 DAY, ORAL
     Route: 048
     Dates: start: 20040608, end: 20040609

REACTIONS (8)
  - ANAPHYLACTIC SHOCK [None]
  - BURNING SENSATION [None]
  - CIRCULATORY COLLAPSE [None]
  - DIFFICULTY IN WALKING [None]
  - MEAN CELL HAEMOGLOBIN CONCENTRATION DECREASED [None]
  - MEAN CELL HAEMOGLOBIN DECREASED [None]
  - MEAN CELL VOLUME DECREASED [None]
  - RED BLOOD CELL SEDIMENTATION RATE DECREASED [None]
